FAERS Safety Report 24708181 (Version 1)
Quarter: 2024Q4

REPORT INFORMATION
  Report Type: Report from Study
  Country: US (occurrence: US)
  Receive Date: 20241207
  Receipt Date: 20241207
  Transmission Date: 20250114
  Serious: Yes (Other)
  Sender: ABBVIE
  Company Number: US-ABBVIE-6033608

PATIENT
  Sex: Female

DRUGS (1)
  1. HUMIRA [Suspect]
     Active Substance: ADALIMUMAB
     Indication: Product used for unknown indication
     Route: 058
     Dates: start: 20231030

REACTIONS (5)
  - Tooth extraction [Recovering/Resolving]
  - Nasopharyngitis [Recovered/Resolved]
  - Endodontic procedure [Recovered/Resolved]
  - Post procedural infection [Recovered/Resolved]
  - Bone loss [Recovering/Resolving]
